FAERS Safety Report 7279390-0 (Version None)
Quarter: 2011Q1

REPORT INFORMATION
  Report Type: 
  Country: None (occurrence: None)
  Receive Date: 20110208
  Receipt Date: 20110128
  Transmission Date: 20110831
  Serious: Yes (Hospitalization)
  Sender: FDA-Public Use
  Company Number: US-BIOGENIDEC-2010BI014254

PATIENT
  Age: 48 Year
  Sex: Female
  Weight: 62 kg

DRUGS (3)
  1. ENABLEX [Concomitant]
     Indication: URINARY HESITATION
  2. TYSABRI [Suspect]
     Indication: MULTIPLE SCLEROSIS
     Route: 042
     Dates: start: 20100302
  3. AVONEX [Concomitant]
     Indication: MULTIPLE SCLEROSIS
     Route: 030
     Dates: start: 20010707

REACTIONS (17)
  - GAIT DISTURBANCE [None]
  - NERVE COMPRESSION [None]
  - ANAEMIA [None]
  - VEIN PAIN [None]
  - URINARY TRACT INFECTION [None]
  - COMPLICATION OF DEVICE INSERTION [None]
  - PRURITUS [None]
  - RASH PAPULAR [None]
  - SWELLING [None]
  - ABDOMINAL DISTENSION [None]
  - FALL [None]
  - DIARRHOEA [None]
  - STRESS [None]
  - HYPOTHYROIDISM [None]
  - CONSTIPATION [None]
  - VEIN DISORDER [None]
  - MULTIPLE SCLEROSIS [None]
